FAERS Safety Report 16794507 (Version 1)
Quarter: 2019Q3

REPORT INFORMATION
  Report Type: Spontaneous
  Country: US (occurrence: US)
  Receive Date: 20190911
  Receipt Date: 20190911
  Transmission Date: 20191005
  Serious: No
  Sender: FDA-Public Use
  Company Number: US-SHIRE-US201929512

PATIENT
  Sex: Male

DRUGS (1)
  1. ELAPRASE [Suspect]
     Active Substance: IDURSULFASE
     Indication: GAUCHER^S DISEASE
     Dosage: 3 DOSAGE FORM, 1X/WEEK
     Route: 065

REACTIONS (1)
  - Intracranial mass [Unknown]
